FAERS Safety Report 9988732 (Version 1)
Quarter: 2013Q4

REPORT INFORMATION
  Report Type: Spontaneous
  Country: CN (occurrence: None)
  Receive Date: 20131007
  Receipt Date: 20131007
  Transmission Date: 20140711
  Serious: Yes (Other)
  Sender: FDA-Public Use
  Company Number: JP-2013-14054

PATIENT
  Sex: 0

DRUGS (1)
  1. OPC-41061 [Suspect]

REACTIONS (1)
  - Renal failure [None]
